FAERS Safety Report 6065171-2 (Version None)
Quarter: 2009Q1

REPORT INFORMATION
  Report Type: 
  Country: None (occurrence: None)
  Receive Date: 20090204
  Receipt Date: 20090123
  Transmission Date: 20090719
  Serious: Yes (Hospitalization, Disabling, Other)
  Sender: FDA-Public Use
  Company Number: GB-WYE-H07912809

PATIENT
  Age: 85 Year
  Sex: Female
  Weight: 48 kg

DRUGS (4)
  1. PANTOZOL [Suspect]
     Indication: GASTROOESOPHAGEAL REFLUX DISEASE
     Dosage: ^UNK (40 MG)^
     Route: 048
     Dates: start: 20060112, end: 20080819
  2. CALCITRIOL [Concomitant]
     Dosage: ^UNK (0.5 MCG)^
     Route: 048
  3. MAGNESIUM GLYCEROPHOSPHATE [Concomitant]
     Dosage: ^4 MILLIMOL^
  4. CALCICHEW [Concomitant]

REACTIONS (3)
  - CONDITION AGGRAVATED [None]
  - HYPOCALCAEMIA [None]
  - HYPOMAGNESAEMIA [None]
